FAERS Safety Report 7328033-6 (Version None)
Quarter: 2011Q1

REPORT INFORMATION
  Report Type: 
  Country: None (occurrence: None)
  Receive Date: 20110303
  Receipt Date: 20110228
  Transmission Date: 20110831
  Serious: No
  Sender: FDA-Public Use
  Company Number: US-PFIZER INC-2008160816

PATIENT
  Sex: Female
  Weight: 63 kg

DRUGS (10)
  1. LIPITOR [Interacting]
     Dosage: 10 MG, DAILY
     Route: 048
     Dates: start: 20060101
  2. ATENOLOL [Concomitant]
     Dosage: UNK
  3. SYNTHROID [Concomitant]
     Indication: THYROID NEOPLASM
     Dosage: 0.5 MG FOR TWO DAYS AND 0.75 MG ON THE THIRD DAY WITH REPEATED CYCLES
  4. SERTRALINE HYDROCHLORIDE [Concomitant]
     Indication: DEPRESSION
     Dosage: 25 MG DAILY
  5. LIPITOR [Suspect]
     Dosage: 10 MG, 1X/DAY
  6. ASPIRIN [Interacting]
     Dosage: 81 MG, 1X/DAY
  7. GINGKOMIN [Interacting]
  8. MULTI-VITAMINS [Interacting]
     Indication: MACULAR DEGENERATION
  9. ATENOLOL [Concomitant]
     Indication: HYPERTENSION
     Dosage: 25MG DAILY
  10. ACETYLSALICYLIC ACID [Concomitant]
     Dosage: UNK

REACTIONS (6)
  - CONSTIPATION [None]
  - PRURITUS [None]
  - MYALGIA [None]
  - HAEMORRHAGE [None]
  - WRONG TECHNIQUE IN DRUG USAGE PROCESS [None]
  - DRUG INTERACTION [None]
